FAERS Safety Report 8273984-1 (Version None)
Quarter: 2012Q2

REPORT INFORMATION
  Report Type: 
  Country: None (occurrence: None)
  Receive Date: 20120409
  Receipt Date: 20120326
  Transmission Date: 20120825
  Serious: Yes (Death)
  Sender: FDA-Public Use
  Company Number: 2012MA003983

PATIENT
  Age: 13 Day

DRUGS (1)
  1. ACETAMINOPHEN AND CODEINE PHOSPHATE [Suspect]
     Indication: EXPOSURE DURING BREAST FEEDING
     Dosage: ;Q12;TRMA
     Route: 063

REACTIONS (3)
  - EXPOSURE DURING BREAST FEEDING [None]
  - DEATH NEONATAL [None]
  - DRUG LEVEL ABOVE THERAPEUTIC [None]
